FAERS Safety Report 4693831-4 (Version None)
Quarter: 2005Q2

REPORT INFORMATION
  Report Type: 
  Country: None (occurrence: None)
  Receive Date: 20050616
  Receipt Date: 20050606
  Transmission Date: 20051028
  Serious: Yes (Hospitalization, Other)
  Sender: FDA-Public Use
  Company Number: 2005013383

PATIENT
  Age: 76 Year
  Sex: Female

DRUGS (6)
  1. BEXTRA [Suspect]
     Indication: INFLAMMATION
     Dosage: 40 MG (20 MG, 2 IN 1 D), ORAL
     Route: 048
     Dates: start: 20050111, end: 20050112
  2. BEXTRA [Suspect]
     Indication: LIMB INJURY
     Dosage: 40 MG (20 MG, 2 IN 1 D), ORAL
     Route: 048
     Dates: start: 20050111, end: 20050112
  3. BEXTRA [Suspect]
     Indication: PAIN IN EXTREMITY
     Dosage: 40 MG (20 MG, 2 IN 1 D), ORAL
     Route: 048
     Dates: start: 20050111, end: 20050112
  4. CAPTOPRIL [Suspect]
     Indication: ILL-DEFINED DISORDER
  5. MIFLASONA             (BECLOMETASONE DIPROPIONATE) [Concomitant]
  6. FORMOTEROL                 (FORMOTEROL) [Concomitant]

REACTIONS (9)
  - AMNESIA [None]
  - BALANCE DISORDER [None]
  - BRONCHITIS [None]
  - CEREBROVASCULAR ACCIDENT [None]
  - CONFUSIONAL STATE [None]
  - HYPERTENSIVE CRISIS [None]
  - MEMORY IMPAIRMENT [None]
  - VISUAL DISTURBANCE [None]
  - VOMITING [None]
